FAERS Safety Report 24340754 (Version 6)
Quarter: 2024Q4

REPORT INFORMATION
  Report Type: Spontaneous
  Country: US (occurrence: US)
  Receive Date: 20240919
  Receipt Date: 20241216
  Transmission Date: 20250114
  Serious: No
  Sender: IPSEN BIOPHARMACEUTICALS, INC.
  Company Number: US-IPSEN Group, Research and Development-2024-18797

PATIENT
  Age: 37 Year
  Sex: Female

DRUGS (12)
  1. SOHONOS [Suspect]
     Active Substance: PALOVAROTENE
     Indication: Fibrodysplasia ossificans progressiva
     Route: 048
     Dates: start: 202311
  2. SOHONOS [Suspect]
     Active Substance: PALOVAROTENE
     Dosage: FLARE DOSE: TAKE 1 CAPSULE BY MOUTH ONCE DAILY ON WEEKS 5-12
     Route: 048
     Dates: start: 202312
  3. SOHONOS [Suspect]
     Active Substance: PALOVAROTENE
     Dosage: FLARE DOSE (1 CAPSULE BY MOUTH ONCE DAILY ON WEEKS 5-12)
     Route: 048
     Dates: start: 20240903
  4. DICLOFENAC SODIUM [Concomitant]
     Active Substance: DICLOFENAC SODIUM
     Route: 048
  5. FAMOTIDINE [Concomitant]
     Active Substance: FAMOTIDINE
     Route: 048
  6. GALZIN [Concomitant]
     Active Substance: ZINC ACETATE
     Dosage: EMPTY STOMACH
     Route: 048
  7. GREEN TEA EXTRACT POWDER [Concomitant]
  8. RECLAST [Concomitant]
     Active Substance: ZOLEDRONIC ACID
     Dosage: 5 MG/100 ML BY INTRAVENOUS PIGGYBACK LAST INFUSION IN JANUARY.
     Route: 042
  9. TUMS ULTRA [Concomitant]
     Active Substance: CALCIUM CARBONATE
     Dosage: TUMS ULTRA 400 MG CALCIUM (1,000 MG) CHEWABLE TABLET 2 TABELTS BY ORAL ROUTE EVERY DAY
     Route: 048
  10. VITAMIN B6 [Concomitant]
     Active Substance: PYRIDOXINE HYDROCHLORIDE
     Route: 048
  11. VITAMIN C [Concomitant]
     Active Substance: ASCORBIC ACID
     Route: 048
  12. VITAMIN D3 [Concomitant]
     Active Substance: CHOLECALCIFEROL
     Dosage: 125 MCG (5000 UNIT) 1 TABLET DAILY BY ORAL ROUTE
     Route: 048

REACTIONS (2)
  - Condition aggravated [Not Recovered/Not Resolved]
  - Dry skin [Unknown]
